FAERS Safety Report 9314225 (Version 2)
Quarter: 2013Q4

REPORT INFORMATION
  Report Type: Spontaneous
  Country: GB (occurrence: None)
  Receive Date: 20130522
  Receipt Date: 20131024
  Transmission Date: 20140711
  Serious: Yes (Hospitalization)
  Sender: FDA-Public Use
  Company Number: FK201301502

PATIENT
  Age: 52 Year
  Sex: Female
  Weight: 69.85 kg

DRUGS (3)
  1. ONDANSETRON [Suspect]
     Indication: PROPHYLAXIS
     Route: 042
     Dates: start: 20130426, end: 20130426
  2. ISOFLURANE [Suspect]
     Indication: ANAESTHESIA
  3. LIPURO [Suspect]
     Indication: GENERAL ANAESTHESIA
     Route: 042
     Dates: start: 20130426, end: 20130426

REACTIONS (5)
  - Hyperventilation [None]
  - Mutism [None]
  - Slow response to stimuli [None]
  - Aphasia [None]
  - Tearfulness [None]
